FAERS Safety Report 4507969-5 (Version None)
Quarter: 2004Q4

REPORT INFORMATION
  Report Type: 
  Country: None (occurrence: None)
  Receive Date: 20041123
  Receipt Date: 20041117
  Transmission Date: 20050328
  Serious: Yes (Life-Threatening, Hospitalization)
  Sender: FDA-Public Use
  Company Number: US-MERCK-0411USA02933

PATIENT
  Sex: Female

DRUGS (11)
  1. VIOXX [Suspect]
     Indication: ARTHRITIS
     Route: 048
     Dates: start: 20011029, end: 20030524
  2. WARFARIN [Concomitant]
     Route: 065
  3. PREDNISONE [Concomitant]
     Route: 065
  4. QUININE [Concomitant]
     Route: 065
  5. LEVOTHYROXINE SODIUM [Concomitant]
     Route: 065
  6. CELEXA [Concomitant]
     Route: 065
  7. REMERON [Concomitant]
     Route: 065
  8. METHOTREXATE [Concomitant]
     Route: 065
  9. LIPITOR [Concomitant]
     Route: 065
  10. FERROUS GLUCONATE [Concomitant]
     Route: 065
  11. FOLIC ACID [Concomitant]
     Route: 065

REACTIONS (2)
  - PULMONARY EMBOLISM [None]
  - THROMBOSIS [None]
